FAERS Safety Report 5716071-6 (Version None)
Quarter: 2008Q2

REPORT INFORMATION
  Report Type: 
  Country: None (occurrence: None)
  Receive Date: 20080424
  Receipt Date: 20080415
  Transmission Date: 20081010
  Serious: Yes (Hospitalization, Other)
  Sender: FDA-Public Use
  Company Number: BR-ROCHE-554665

PATIENT
  Sex: Male
  Weight: 27 kg

DRUGS (8)
  1. RIVOTRIL [Suspect]
     Route: 048
     Dates: start: 20030101, end: 20080318
  2. DOGMATIL [Concomitant]
     Route: 065
  3. NEOZINE [Concomitant]
  4. TEGRETOL [Concomitant]
  5. FENERGAN [Concomitant]
  6. UNSPECIFIED MEDICATIONS [Concomitant]
     Dosage: STOP DATE: 2008
     Dates: start: 20050101
  7. RISPERIDONE [Concomitant]
  8. GARDENAL [Concomitant]

REACTIONS (4)
  - COMA [None]
  - HYPERSENSITIVITY [None]
  - NASOPHARYNGITIS [None]
  - OPHTHALMOPLEGIA [None]
